FAERS Safety Report 8740585 (Version 2)
Quarter: 2012Q4

REPORT INFORMATION
  Report Type: 
  Country: US (occurrence: US)
  Receive Date: 20120823
  Receipt Date: 20120830
  Transmission Date: 20130627
  Serious: No
  Sender: FDA-Public Use
  Company Number: US-009507513-1208USA008431

PATIENT

DRUGS (5)
  1. ZETIA [Suspect]
     Indication: HYPERCHOLESTEROLAEMIA
     Route: 048
  2. DOXYCYCLINE [Concomitant]
     Indication: RASH
     Dosage: 100 mg, qd
     Route: 048
  3. CLINDAMYCIN [Concomitant]
     Indication: RASH
     Route: 061
  4. NIACIN [Concomitant]
     Indication: BLOOD CHOLESTEROL INCREASED
  5. PLAQUENIL [Suspect]

REACTIONS (2)
  - Breast tenderness [Not Recovered/Not Resolved]
  - Breast mass [Not Recovered/Not Resolved]
